FAERS Safety Report 10658407 (Version 4)
Quarter: 2014Q4

REPORT INFORMATION
  Report Type: Spontaneous
  Country: US (occurrence: US)
  Receive Date: 20141217
  Receipt Date: 20141231
  Transmission Date: 20150529
  Serious: Yes (Congenital Anomaly, Other)
  Sender: FDA-Public Use
  Company Number: US-PFIZER INC-1998-001669

PATIENT
  Age: 1 Day
  Sex: Male
  Weight: 2.84 kg

DRUGS (5)
  1. RETROVIR [Suspect]
     Active Substance: ZIDOVUDINE
     Indication: HIV INFECTION
     Dosage: 300 MG/DAY
     Route: 064
     Dates: start: 19980112, end: 19980602
  2. VIDEX [Suspect]
     Active Substance: DIDANOSINE
     Indication: HIV INFECTION
     Dosage: UNK
     Route: 064
     Dates: start: 19980205, end: 19980602
  3. SULFAMETHOXAZOLE AND TRIMETHOPRIM [Concomitant]
     Active Substance: SULFAMETHOXAZOLE\TRIMETHOPRIM
     Dosage: UNK
     Route: 064
     Dates: start: 19980112
  4. VIRACEPT [Suspect]
     Active Substance: NELFINAVIR MESYLATE
     Indication: HIV INFECTION
     Dosage: 250 MG/DAY
     Route: 064
     Dates: start: 19980205, end: 19980602
  5. OXYTOCIN. [Concomitant]
     Active Substance: OXYTOCIN
     Dosage: UNK
     Route: 064

REACTIONS (7)
  - Hypotension [Unknown]
  - Thrombocytopenia [Unknown]
  - Brain injury [Unknown]
  - Patent ductus arteriosus [Unknown]
  - Hypoxia [Unknown]
  - Trisomy 21 [Unknown]
  - Kidney malformation [Not Recovered/Not Resolved]

NARRATIVE: CASE EVENT DATE: 19980602
